FAERS Safety Report 19278259 (Version 1)
Quarter: 2021Q2

REPORT INFORMATION
  Report Type: Spontaneous
  Country: US (occurrence: US)
  Receive Date: 20210519
  Receipt Date: 20210519
  Transmission Date: 20210717
  Serious: No
  Sender: FDA-Public Use
  Company Number: None

PATIENT
  Age: 62 Year
  Sex: Male

DRUGS (1)
  1. EGRIFTA SV [Suspect]
     Active Substance: TESAMORELIN ACETATE
     Route: 058
     Dates: start: 202005

REACTIONS (2)
  - Back pain [None]
  - Carpal tunnel syndrome [None]

NARRATIVE: CASE EVENT DATE: 20210319
